FAERS Safety Report 6295058-1 (Version None)
Quarter: 2009Q3

REPORT INFORMATION
  Report Type: 
  Country: None (occurrence: None)
  Receive Date: 20090731
  Receipt Date: 20090731
  Transmission Date: 20100115
  Serious: Yes (Hospitalization, Other)
  Sender: FDA-Public Use
  Company Number: None

PATIENT
  Sex: Female
  Weight: 56.6996 kg

DRUGS (5)
  1. CYMBALTA [Suspect]
     Indication: FIBROMYALGIA
     Dosage: TOOK ONCE
     Dates: start: 20061022, end: 20061022
  2. ACCUPRIL [Concomitant]
  3. WELLBUTRIN [Concomitant]
  4. IBUPROPHEN [Concomitant]
  5. IMITREX [Concomitant]

REACTIONS (14)
  - APHASIA [None]
  - ASTHENIA [None]
  - BLOOD MAGNESIUM DECREASED [None]
  - BLOOD POTASSIUM DECREASED [None]
  - CONVULSION [None]
  - FEELING COLD [None]
  - HEADACHE [None]
  - HYPERHIDROSIS [None]
  - MOVEMENT DISORDER [None]
  - PANIC ATTACK [None]
  - SKIN WARM [None]
  - TREMOR [None]
  - VISUAL IMPAIRMENT [None]
  - VOMITING [None]
